FAERS Safety Report 8740241 (Version 2)
Quarter: 2012Q4

REPORT INFORMATION
  Report Type: Report from Study
  Country: JP (occurrence: JP)
  Receive Date: 20120823
  Receipt Date: 20120915
  Transmission Date: 20130627
  Serious: Yes (Other)
  Sender: FDA-Public Use
  Company Number: JP-009507513-2012SP027853

PATIENT

DRUGS (11)
  1. PEGINTRON [Suspect]
     Indication: HEPATITIS C
     Dosage: 1.18 Microgram per kilogram, qw
     Route: 058
     Dates: start: 20120206, end: 20120215
  2. PEGINTRON [Suspect]
     Dosage: 0.5 Microgram per kilogram, qw
     Route: 058
     Dates: start: 20120406, end: 20120723
  3. REBETOL [Suspect]
     Indication: HEPATITIS C
     Dosage: 400 mg, qd
     Route: 048
     Dates: start: 20120206, end: 20120215
  4. REBETOL [Suspect]
     Dosage: 200 mg, qd
     Route: 048
     Dates: start: 20120406
  5. REBETOL [Suspect]
     Dosage: 400 mg, qd
     Route: 048
     Dates: start: 20120412, end: 20120723
  6. TELAVIC [Suspect]
     Indication: HEPATITIS C
     Dosage: 2250 mg, QD
     Route: 048
     Dates: start: 20120206, end: 20120215
  7. TELAVIC [Suspect]
     Dosage: 500 mg, QD
     Route: 048
     Dates: start: 20120406, end: 20120531
  8. VOLTAREN [Concomitant]
     Indication: PROPHYLAXIS
     Dosage: 25 mg, prn
     Route: 054
     Dates: start: 20120206, end: 20120215
  9. PONTAL [Concomitant]
     Indication: PROPHYLAXIS
     Dosage: 250 mg, qd
     Route: 048
     Dates: start: 20120427
  10. VOLTAREN SR [Concomitant]
     Dosage: UNK UNK, prn
     Route: 048
     Dates: end: 20120723
  11. SELBEX [Concomitant]
     Dosage: UNK UNK, prn
     Route: 048
     Dates: end: 20120723

REACTIONS (2)
  - Platelet count decreased [Not Recovered/Not Resolved]
  - Platelet count decreased [Recovering/Resolving]
